FAERS Safety Report 21518330 (Version 1)
Quarter: 2022Q4

REPORT INFORMATION
  Report Type: Report from Study
  Country: PR (occurrence: PR)
  Receive Date: 20221028
  Receipt Date: 20221028
  Transmission Date: 20230113
  Serious: Yes (Hospitalization)
  Sender: FDA-Public Use
  Company Number: PR-ABBVIE-4177029

PATIENT
  Sex: Female
  Weight: 59.874 kg

DRUGS (3)
  1. HUMIRA [Suspect]
     Active Substance: ADALIMUMAB
     Indication: Colitis ulcerative
     Dosage: 160MG INITIAL DOSE, FORM STRENGTH 40 MG
     Route: 058
     Dates: start: 20221014, end: 20221014
  2. TOZINAMERAN [Concomitant]
     Active Substance: TOZINAMERAN
     Indication: COVID-19
     Dosage: 2ND DOSE
     Route: 030
  3. TOZINAMERAN [Concomitant]
     Active Substance: TOZINAMERAN
     Indication: COVID-19
     Dosage: 3RD DOSE
     Route: 030

REACTIONS (1)
  - Clostridium bacteraemia [Not Recovered/Not Resolved]

NARRATIVE: CASE EVENT DATE: 20221001
